FAERS Safety Report 9006439 (Version 1)
Quarter: 2013Q1

REPORT INFORMATION
  Report Type: Spontaneous
  Country: US (occurrence: US)
  Receive Date: 20130110
  Receipt Date: 20130110
  Transmission Date: 20140127
  Serious: No
  Sender: FDA-Public Use
  Company Number: US-PFIZER INC-2013007406

PATIENT
  Age: 93 Year
  Sex: Male
  Weight: 63.95 kg

DRUGS (2)
  1. FLECTOR [Suspect]
     Indication: MUSCLE SPASMS
     Dosage: UNK
     Route: 062
     Dates: start: 20130101, end: 201301
  2. LIDODERM [Suspect]
     Indication: MUSCULOSKELETAL DISCOMFORT
     Dosage: UNK
     Dates: end: 20130105

REACTIONS (3)
  - Expired drug administered [Unknown]
  - Drug ineffective [Unknown]
  - Burning sensation [Recovered/Resolved]
